FAERS Safety Report 10314570 (Version 3)
Quarter: 2014Q4

REPORT INFORMATION
  Report Type: Spontaneous
  Country: US (occurrence: None)
  Receive Date: 20140714
  Receipt Date: 20141029
  Transmission Date: 20150528
  Serious: Yes (Other)
  Sender: FDA-Public Use
  Company Number: ADR-2014-00591

PATIENT
  Age: 57 Year
  Sex: Male

DRUGS (4)
  1. BACLOFEN INTRATHECAL [Suspect]
     Active Substance: BACLOFEN
     Indication: PAIN
  2. HYDROMORPHONE INTRATHECAL [Suspect]
     Active Substance: HYDROMORPHONE
     Indication: PAIN
  3. BUPIVACAINE INTRATHECAL [Suspect]
     Active Substance: BUPIVACAINE
  4. CLONIDINE. [Suspect]
     Active Substance: CLONIDINE

REACTIONS (9)
  - Malaise [None]
  - Granuloma [None]
  - Medical device site reaction [None]
  - Drug withdrawal syndrome [None]
  - Therapeutic response decreased [None]
  - Incorrect dose administered by device [None]
  - Posture abnormal [None]
  - Back pain [None]
  - Device power source issue [None]
